FAERS Safety Report 9693470 (Version 1)
Quarter: 2013Q4

REPORT INFORMATION
  Report Type: Spontaneous
  Country: GB (occurrence: GB)
  Receive Date: 20131118
  Receipt Date: 20131118
  Transmission Date: 20140711
  Serious: Yes (Other)
  Sender: FDA-Public Use
  Company Number: GB-PFIZER INC-2013324843

PATIENT
  Age: 62 Year
  Sex: Male

DRUGS (1)
  1. ISTIN [Suspect]
     Indication: HYPERTENSION
     Dosage: 10 MG, DAILY

REACTIONS (2)
  - Rheumatoid arthritis [Unknown]
  - Abdominal discomfort [Unknown]
